FAERS Safety Report 18927322 (Version 2)
Quarter: 2021Q1

REPORT INFORMATION
  Report Type: Spontaneous
  Country: US (occurrence: US)
  Receive Date: 20210223
  Receipt Date: 20210312
  Transmission Date: 20210420
  Serious: Yes (Hospitalization, Other)
  Sender: FDA-Public Use
  Company Number: US-ELI_LILLY_AND_COMPANY-US202102006783

PATIENT
  Age: 65 Year
  Sex: Female

DRUGS (2)
  1. HUMULIN 70/30 [Suspect]
     Active Substance: INSULIN HUMAN
     Indication: TYPE 2 DIABETES MELLITUS
     Dosage: 75 U, EACH MORNING
     Route: 065
     Dates: start: 20021113
  2. HUMULIN 70/30 [Suspect]
     Active Substance: INSULIN HUMAN
     Dosage: 70 U, DAILY
     Route: 065
     Dates: start: 20021113

REACTIONS (6)
  - Fall [Recovering/Resolving]
  - Blood glucose increased [Recovered/Resolved]
  - Meniscus injury [Recovering/Resolving]
  - Muscle injury [Recovered/Resolved]
  - Fall [Recovering/Resolving]
  - Blister [Unknown]

NARRATIVE: CASE EVENT DATE: 202009
